FAERS Safety Report 7154970-1 (Version None)
Quarter: 2010Q4

REPORT INFORMATION
  Report Type: 
  Country: None (occurrence: None)
  Receive Date: 20101214
  Receipt Date: 20091119
  Transmission Date: 20110411
  Serious: No
  Sender: FDA-Public Use
  Company Number: US-AMGEN-KDL375796

PATIENT

DRUGS (2)
  1. ENBREL [Suspect]
     Indication: RHEUMATOID ARTHRITIS
     Dosage: 25 MG, 2 TIMES/WK
  2. METHOTREXATE [Concomitant]
     Dosage: UNK UNK, UNK
     Dates: end: 20090328

REACTIONS (4)
  - ARTHRALGIA [None]
  - JOINT DESTRUCTION [None]
  - JOINT STIFFNESS [None]
  - RHEUMATOID ARTHRITIS [None]
